FAERS Safety Report 9347693 (Version 1)
Quarter: 2013Q2

REPORT INFORMATION
  Report Type: Report from Study
  Country: FR (occurrence: FR)
  Receive Date: 20130614
  Receipt Date: 20130614
  Transmission Date: 20140414
  Serious: Yes (Other)
  Sender: FDA-Public Use
  Company Number: FR-ROCHE-1236119

PATIENT
  Sex: Male

DRUGS (16)
  1. RITUXIMAB [Suspect]
     Indication: B-CELL LYMPHOMA
     Route: 065
     Dates: start: 20070418
  2. RITUXIMAB [Suspect]
     Route: 065
     Dates: start: 20070425
  3. RITUXIMAB [Suspect]
     Route: 065
     Dates: start: 20070502
  4. RITUXIMAB [Suspect]
     Route: 065
     Dates: start: 20070509
  5. RITUXIMAB [Suspect]
     Route: 065
     Dates: start: 20070709
  6. RITUXIMAB [Suspect]
     Route: 065
     Dates: start: 20070903
  7. RITUXIMAB [Suspect]
     Route: 065
     Dates: start: 20071031
  8. RITUXIMAB [Suspect]
     Route: 065
     Dates: start: 20071226
  9. RITUXIMAB [Suspect]
     Route: 065
     Dates: start: 20080220
  10. RITUXIMAB [Suspect]
     Route: 065
     Dates: start: 20080416
  11. RITUXIMAB [Suspect]
     Route: 065
     Dates: start: 20080611
  12. RITUXIMAB [Suspect]
     Route: 065
     Dates: start: 20080806
  13. RITUXIMAB [Suspect]
     Route: 065
     Dates: end: 20081001
  14. RITUXIMAB [Suspect]
     Route: 065
     Dates: end: 20081126
  15. RITUXIMAB [Suspect]
     Route: 065
     Dates: end: 20090121
  16. RITUXIMAB [Suspect]
     Route: 065
     Dates: end: 20090320

REACTIONS (2)
  - Adenocarcinoma of colon [Unknown]
  - Colon cancer [Unknown]
